FAERS Safety Report 15473342 (Version 2)
Quarter: 2018Q4

REPORT INFORMATION
  Report Type: Spontaneous
  Country: CA (occurrence: CA)
  Receive Date: 20181008
  Receipt Date: 20181108
  Transmission Date: 20190205
  Serious: Yes (Hospitalization)
  Sender: FDA-Public Use
  Company Number: CA-LPDUSPRD-20181805

PATIENT
  Age: 46 Year
  Sex: Female

DRUGS (2)
  1. VENOFER [Suspect]
     Active Substance: IRON SUCROSE
     Dosage: 300 MG /250 MG NS
     Route: 042
     Dates: start: 20180924
  2. IBUPROFEN. [Concomitant]
     Active Substance: IBUPROFEN
     Dosage: UNKNOWN AS NEEDED
     Route: 065

REACTIONS (6)
  - Peripheral swelling [Unknown]
  - Product quality issue [Unknown]
  - Urticaria [Unknown]
  - Cardiac arrest [Unknown]
  - Dizziness [Unknown]
  - Blood pressure decreased [Unknown]

NARRATIVE: CASE EVENT DATE: 20180924
